FAERS Safety Report 21045293 (Version 1)
Quarter: 2022Q3

REPORT INFORMATION
  Report Type: Spontaneous
  Country: BR (occurrence: BR)
  Receive Date: 20220706
  Receipt Date: 20220706
  Transmission Date: 20221027
  Serious: Yes (Hospitalization)
  Sender: FDA-Public Use
  Company Number: BR-STRIDES ARCOLAB LIMITED-2022SP008202

PATIENT
  Age: 52 Year
  Sex: Female

DRUGS (9)
  1. PREDNISOLONE [Suspect]
     Active Substance: PREDNISOLONE
     Indication: Papilloedema
     Dosage: 40 MILLIGRAM PER DAY, FOR THREE DAYS
     Route: 048
     Dates: start: 201912
  2. PREDNISOLONE [Suspect]
     Active Substance: PREDNISOLONE
     Indication: Toxoplasmosis
     Dosage: 0.6 MILLIGRAM/KILOGRAM PER DAY
     Route: 065
     Dates: start: 202001
  3. METHYLPREDNISOLONE [Suspect]
     Active Substance: METHYLPREDNISOLONE
     Indication: Papilloedema
     Dosage: 15 MILLIGRAM/KILOGRAM PER DAY, FOR THREE DAYS
     Route: 042
  4. PYRIMETHAMINE [Suspect]
     Active Substance: PYRIMETHAMINE
     Indication: Toxoplasmosis
     Dosage: 50 MILLIGRAM PER DAY
     Route: 065
     Dates: start: 202001
  5. SULFADIAZINE [Suspect]
     Active Substance: SULFADIAZINE
     Indication: Toxoplasmosis
     Dosage: 4 GRAM PER DAY
     Route: 065
     Dates: start: 202001
  6. LEUCOVORIN [Suspect]
     Active Substance: LEUCOVORIN
     Indication: Toxoplasmosis
     Dosage: 15 MILLIGRAM PER THREE DAYS
     Route: 065
     Dates: start: 202001
  7. COTRIMOXAZOLE [Suspect]
     Active Substance: SULFAMETHOXAZOLE\TRIMETHOPRIM
     Indication: Toxoplasmosis
     Dosage: UNK
     Route: 065
  8. DORZOLAMIDE [Concomitant]
     Active Substance: DORZOLAMIDE
     Indication: Intraocular pressure increased
     Dosage: 20 MILLIGRAM PER MILLILITRE, EYE DROPS
     Route: 047
  9. TIMOLOL MALEATE [Concomitant]
     Active Substance: TIMOLOL MALEATE
     Indication: Intraocular pressure increased
     Dosage: 5 MILLIGRAM PER MILLILITRE,  12/12 HOURS
     Route: 047

REACTIONS (3)
  - Abdominal discomfort [Recovered/Resolved]
  - Hypertension [Recovered/Resolved]
  - Toxoplasmosis [Unknown]
